FAERS Safety Report 9296720 (Version 2)
Quarter: 2013Q2

REPORT INFORMATION
  Report Type: Report from Study
  Country: AU (occurrence: AU)
  Receive Date: 20130517
  Receipt Date: 20130603
  Transmission Date: 20140414
  Serious: Yes (Other)
  Sender: FDA-Public Use
  Company Number: PHHY2013AU049209

PATIENT
  Age: 84 Year
  Sex: Female

DRUGS (2)
  1. ACLASTA [Suspect]
     Dosage: 5 MG
     Route: 042
     Dates: start: 20100302
  2. ACLASTA [Suspect]
     Dosage: 5 MG
     Route: 042
     Dates: start: 20110414

REACTIONS (6)
  - Fall [Recovering/Resolving]
  - Facial bones fracture [Recovered/Resolved]
  - Pelvic fracture [Recovering/Resolving]
  - Sinusitis [Recovering/Resolving]
  - Syncope [Recovered/Resolved]
  - Influenza [Recovering/Resolving]
